FAERS Safety Report 25342372 (Version 3)
Quarter: 2025Q3

REPORT INFORMATION
  Report Type: Spontaneous
  Country: US (occurrence: US)
  Receive Date: 20250521
  Receipt Date: 20250820
  Transmission Date: 20251021
  Serious: No
  Sender: CATALYST PHARMA
  Company Number: US-CATALYST PHARMACEUTICALS-US-CATA-25-00227

PATIENT
  Sex: Male
  Weight: 19.274 kg

DRUGS (3)
  1. AGAMREE [Suspect]
     Active Substance: VAMOROLONE
     Indication: Duchenne muscular dystrophy
     Dosage: 3 ML ONCE DAILY
     Route: 048
     Dates: start: 20250116, end: 2025
  2. AGAMREE [Suspect]
     Active Substance: VAMOROLONE
     Route: 048
     Dates: start: 2025, end: 2025
  3. AGAMREE [Suspect]
     Active Substance: VAMOROLONE
     Dosage: 3.6 ML DAILY
     Route: 048
     Dates: start: 20250410

REACTIONS (13)
  - Chest pain [Not Recovered/Not Resolved]
  - Pain in extremity [Not Recovered/Not Resolved]
  - Weight decreased [Not Recovered/Not Resolved]
  - Pollakiuria [Not Recovered/Not Resolved]
  - Eye disorder [Not Recovered/Not Resolved]
  - Oropharyngeal pain [Recovered/Resolved]
  - Gingival swelling [Recovered/Resolved]
  - Psychomotor hyperactivity [Not Recovered/Not Resolved]
  - Abnormal behaviour [Not Recovered/Not Resolved]
  - Influenza [Recovered/Resolved]
  - Vomiting [Recovered/Resolved]
  - Insomnia [Not Recovered/Not Resolved]
  - Inappropriate schedule of product administration [Unknown]

NARRATIVE: CASE EVENT DATE: 20250101
